FAERS Safety Report 11799671 (Version 1)
Quarter: 2015Q4

REPORT INFORMATION
  Report Type: Spontaneous
  Country: US (occurrence: US)
  Receive Date: 20151203
  Receipt Date: 20151203
  Transmission Date: 20160305
  Serious: No
  Sender: FDA-Public Use
  Company Number: US-BAYER-2015-466314

PATIENT
  Sex: Female

DRUGS (1)
  1. ZEGERID OTC CAPSULES [Suspect]
     Active Substance: OMEPRAZOLE\SODIUM BICARBONATE
     Dosage: 3 DF, QD (CAPSULE IN THE MORNING AND 2 CAPSULES IN)
     Route: 048

REACTIONS (2)
  - Drug prescribing error [None]
  - Off label use [None]
